FAERS Safety Report 18605045 (Version 1)
Quarter: 2020Q4

REPORT INFORMATION
  Report Type: Spontaneous
  Country: IR (occurrence: IR)
  Receive Date: 20201211
  Receipt Date: 20201211
  Transmission Date: 20210114
  Serious: Yes (Other)
  Sender: FDA-Public Use
  Company Number: IR-SUN PHARMACEUTICAL INDUSTRIES LTD-2020RR-271124

PATIENT
  Age: 21 Year
  Sex: Male

DRUGS (2)
  1. ZOLPIDEM [Suspect]
     Active Substance: ZOLPIDEM TARTRATE
     Dosage: 5 MILLIGRAM, BID
     Route: 065
  2. ZOLPIDEM [Suspect]
     Active Substance: ZOLPIDEM TARTRATE
     Indication: CLONUS
     Dosage: 70-80 MILLIGRAM
     Route: 065

REACTIONS (4)
  - Drug dependence [Unknown]
  - Dizziness [Recovered/Resolved]
  - Nightmare [Recovered/Resolved]
  - Withdrawal syndrome [Unknown]
